FAERS Safety Report 8920234 (Version 1)
Quarter: 2012Q4

REPORT INFORMATION
  Report Type: 
  Country: FR (occurrence: FR)
  Receive Date: 20121121
  Receipt Date: 20121121
  Transmission Date: 20130627
  Serious: Yes (Hospitalization, Other)
  Sender: FDA-Public Use
  Company Number: FR-ABBOTT-12P-056-1007707-00

PATIENT
  Age: 48 Year
  Sex: Male

DRUGS (1)
  1. HUMIRA [Suspect]
     Indication: CROHN^S DISEASE
     Route: 058
     Dates: start: 20120126

REACTIONS (4)
  - Acute coronary syndrome [Recovered/Resolved]
  - Left ventricular hypertrophy [Unknown]
  - Coronary artery stenosis [Unknown]
  - Chest pain [Unknown]
